FAERS Safety Report 7867402 (Version 2)
Quarter: 2013Q2

REPORT INFORMATION
  Report Type: Spontaneous
  Country: CO (occurrence: CO)
  Receive Date: 20110323
  Receipt Date: 20130405
  Transmission Date: 20140414
  Serious: Yes (Death, Hospitalization, Other)
  Sender: FDA-Public Use
  Company Number: CO-PAR PHARMACEUTICAL, INC-2011SCPR002774

PATIENT
  Sex: 0

DRUGS (2)
  1. IBUPROFEN [Suspect]
     Indication: OTITIS MEDIA ACUTE
     Dosage: UNK UNK, UNKNOWN
     Route: 065
  2. AMOXICILLIN [Concomitant]
     Indication: OTITIS MEDIA ACUTE
     Dosage: UNK, UNKNOWN
     Route: 065

REACTIONS (14)
  - Death [Fatal]
  - Multi-organ failure [Fatal]
  - Nosocomial infection [Fatal]
  - Necrotising fasciitis [Recovering/Resolving]
  - Septic shock [Recovering/Resolving]
  - Respiratory failure [Recovering/Resolving]
  - Leukopenia [Unknown]
  - Anaemia [Unknown]
  - Thrombocytopenia [Unknown]
  - Disseminated intravascular coagulation [Unknown]
  - Pseudomonas infection [Unknown]
  - Pneumonia [Unknown]
  - Acute respiratory distress syndrome [Unknown]
  - Ileal perforation [Recovering/Resolving]
